FAERS Safety Report 25795159 (Version 2)
Quarter: 2025Q4

REPORT INFORMATION
  Report Type: Spontaneous
  Country: JP (occurrence: JP)
  Receive Date: 20250912
  Receipt Date: 20251009
  Transmission Date: 20260117
  Serious: Yes (Death, Other)
  Sender: ALEXION PHARMACEUTICALS
  Company Number: JP-AstraZeneca-CH-00947408A

PATIENT
  Age: 86 Year
  Sex: Male
  Weight: 38 kg

DRUGS (10)
  1. ANDEXXA [Suspect]
     Active Substance: ANDEXANET ALFA
     Indication: Haemorrhage intracranial
     Dosage: 1760 MILLIGRAM
     Dates: start: 20250908, end: 20250908
  2. EDOXABAN TOSYLATE [Concomitant]
     Active Substance: EDOXABAN TOSYLATE
     Dosage: 30 MILLIGRAM, QD (1 DIVIDED DOSE IN THE EVENING)
     Route: 065
  3. DOTINURAD [Concomitant]
     Active Substance: DOTINURAD
     Dosage: 1 MILLIGRAM (IN THE EVENING)
     Route: 065
  4. DAPRODUSTAT [Concomitant]
     Active Substance: DAPRODUSTAT
     Dosage: 2 MILLIGRAM (1 DIVIDED DOSE IN THE EVENING)
     Route: 065
  5. VONOPRAZAN FUMARATE [Concomitant]
     Active Substance: VONOPRAZAN FUMARATE
     Dosage: 10 MILLIGRAM (1 DIVIDED DOSE IN THE EVENING)
     Route: 065
  6. OLMESARTAN [Concomitant]
     Active Substance: OLMESARTAN
     Dosage: 10 MILLIGRAM, QD (1 DIVIDED DOSE 3 PIECES)
     Route: 065
  7. BISOPROLOL FUMARATE [Concomitant]
     Active Substance: BISOPROLOL FUMARATE
     Dosage: 1.25 MILLIGRAM (1 DIVIDED DOSE IN THE MORNING)
     Route: 065
  8. SPIRONOLACTONE [Concomitant]
     Active Substance: SPIRONOLACTONE
     Dosage: 25 MILLIGRAM (1 DIVIDED DOSE IN THE MORNING)
     Route: 065
  9. TOLVAPTAN [Concomitant]
     Active Substance: TOLVAPTAN
     Dosage: 7.5 MILLIGRAM, QD (1 DIVIDED DOSE IN THE MORNING)
     Route: 065
  10. TU-100 [Concomitant]
     Active Substance: ASIAN GINSENG\GINGER\ZANTHOXYLUM PIPERITUM FRUIT PULP
     Dosage: 7.5 GRAM (3 DIVIDED DOSES)
     Route: 065

REACTIONS (3)
  - Cardiac failure acute [Fatal]
  - Embolic cerebral infarction [Fatal]
  - Paralysis [Unknown]

NARRATIVE: CASE EVENT DATE: 20250908
